FAERS Safety Report 8711052 (Version 2)
Quarter: 2013Q4

REPORT INFORMATION
  Report Type: Spontaneous
  Country: US (occurrence: US)
  Receive Date: 20120807
  Receipt Date: 20131101
  Transmission Date: 20140711
  Serious: No
  Sender: FDA-Public Use
  Company Number: US-009507513-1208USA001403

PATIENT
  Age: 6 Year
  Sex: Female
  Weight: 2.27 kg

DRUGS (1)
  1. CLARITIN ORAL SOLUTION [Suspect]
     Indication: HYPERSENSITIVITY
     Dosage: 30 MG, ONCE
     Route: 048
     Dates: start: 20120720

REACTIONS (1)
  - Overdose [Unknown]
